FAERS Safety Report 6071866-7 (Version None)
Quarter: 2009Q1

REPORT INFORMATION
  Report Type: 
  Country: None (occurrence: None)
  Receive Date: 20090210
  Receipt Date: 20090129
  Transmission Date: 20090719
  Serious: Yes (Other)
  Sender: FDA-Public Use
  Company Number: DE-BAYER-200823836GPV

PATIENT
  Age: 44 Year
  Sex: Female
  Weight: 60 kg

DRUGS (2)
  1. MIRENA [Suspect]
     Indication: DRUG USE FOR UNKNOWN INDICATION
     Dosage: TOTAL DAILY DOSE: 20 ?G
     Route: 015
     Dates: start: 20080508
  2. FALITHROM [Concomitant]
     Indication: DRUG USE FOR UNKNOWN INDICATION
     Route: 065
     Dates: start: 20080401, end: 20080701

REACTIONS (4)
  - AMBLYOPIA [None]
  - CHORIORETINOPATHY [None]
  - PAPILLOEDEMA [None]
  - VISUAL IMPAIRMENT [None]
